FAERS Safety Report 6284217-X (Version None)
Quarter: 2009Q3

REPORT INFORMATION
  Report Type: 
  Country: None (occurrence: None)
  Receive Date: 20090727
  Receipt Date: 20090716
  Transmission Date: 20100115
  Serious: Yes (Hospitalization)
  Sender: FDA-Public Use
  Company Number: JP-JNJFOC-20090704050

PATIENT
  Age: 47 Year
  Sex: Female
  Weight: 45 kg

DRUGS (17)
  1. REMICADE [Suspect]
     Dosage: 4TH INFUSION
     Route: 042
  2. REMICADE [Suspect]
     Route: 042
  3. REMICADE [Suspect]
     Route: 042
  4. REMICADE [Suspect]
     Indication: CROHN'S DISEASE
     Route: 042
  5. SOLU-CORTEF [Suspect]
     Route: 042
  6. SOLU-CORTEF [Suspect]
     Route: 042
  7. SOLU-CORTEF [Suspect]
     Route: 042
  8. SOLU-CORTEF [Suspect]
     Indication: PREMEDICATION
     Route: 042
  9. PENTASA [Concomitant]
     Indication: CROHN'S DISEASE
     Route: 048
  10. FULCALIQ [Concomitant]
     Indication: CROHN'S DISEASE
  11. LAC-B [Concomitant]
     Indication: CROHN'S DISEASE
     Route: 048
  12. ELENTAL [Concomitant]
     Indication: CROHN'S DISEASE
     Route: 048
  13. DEXCHLORPHENIRAMINE MALEATE [Concomitant]
     Route: 042
  14. DEXCHLORPHENIRAMINE MALEATE [Concomitant]
     Route: 042
  15. DEXCHLORPHENIRAMINE MALEATE [Concomitant]
     Indication: PREMEDICATION
     Route: 042
  16. FAMOTIDINE [Concomitant]
     Indication: PROPHYLAXIS
     Route: 048
  17. RACOL [Concomitant]
     Indication: CROHN'S DISEASE
     Route: 048

REACTIONS (1)
  - HERPES ZOSTER [None]
